FAERS Safety Report 19648195 (Version 1)
Quarter: 2021Q3

REPORT INFORMATION
  Report Type: Spontaneous
  Country: MX (occurrence: MX)
  Receive Date: 20210803
  Receipt Date: 20210803
  Transmission Date: 20211014
  Serious: Yes (Disabling, Other)
  Sender: FDA-Public Use
  Company Number: MX-ROCHE-2881975

PATIENT
  Age: 54 Year
  Sex: Male

DRUGS (3)
  1. PACLITAXEL. [Concomitant]
     Active Substance: PACLITAXEL
  2. ALECTINIB. [Suspect]
     Active Substance: ALECTINIB
     Indication: LUNG ADENOCARCINOMA
     Dosage: DOSE AND FREQUENCY WERE NOT REPORTED
     Route: 065
  3. PACLITAXEL. [Concomitant]
     Active Substance: PACLITAXEL

REACTIONS (4)
  - Fatigue [Unknown]
  - Myalgia [Unknown]
  - Urinary incontinence [Unknown]
  - Bradycardia [Unknown]
